FAERS Safety Report 13831075 (Version 1)
Quarter: 2017Q3

REPORT INFORMATION
  Report Type: Spontaneous
  Country: JP (occurrence: JP)
  Receive Date: 20170803
  Receipt Date: 20170803
  Transmission Date: 20171127
  Serious: Yes (Hospitalization, Other)
  Sender: FDA-Public Use
  Company Number: JP-BAYER-2017-143707

PATIENT
  Age: 30 Year
  Sex: Female

DRUGS (3)
  1. ASPIRIN 100 % [Suspect]
     Active Substance: ASPIRIN
     Indication: ANTIPHOSPHOLIPID SYNDROME
  2. HEPARIN [Concomitant]
     Active Substance: HEPARIN SODIUM
     Indication: ANTIPHOSPHOLIPID SYNDROME
  3. METHOTREXATE. [Concomitant]
     Active Substance: METHOTREXATE
     Indication: GESTATIONAL TROPHOBLASTIC TUMOUR

REACTIONS (4)
  - Multiple pregnancy [None]
  - Drug-induced liver injury [None]
  - Exposure during pregnancy [None]
  - Hyperemesis gravidarum [Recovering/Resolving]
